FAERS Safety Report 9054732 (Version 1)
Quarter: 2013Q1

REPORT INFORMATION
  Report Type: Spontaneous
  Country: US (occurrence: US)
  Receive Date: 20130208
  Receipt Date: 20130208
  Transmission Date: 20140127
  Serious: Yes (Other)
  Sender: FDA-Public Use
  Company Number: PHEH2013US003048

PATIENT
  Sex: Male

DRUGS (12)
  1. GLEEVEC [Suspect]
     Indication: GASTROINTESTINAL STROMAL TUMOUR
     Dosage: 400 MG, QD
     Route: 048
     Dates: start: 201104
  2. OMEPRAZOLE [Suspect]
     Dosage: UNK UKN, UNK
  3. LORAZEPAM [Suspect]
     Dosage: UNK UKN, UNK
  4. MORPHINE SULFATE [Suspect]
     Dosage: UNK UKN, UNK
  5. VITAMIN B3 [Concomitant]
     Dosage: UNK UKN, UNK
  6. TRAZODONE [Concomitant]
     Dosage: UNK UKN, UNK
  7. LOSARTAN [Concomitant]
     Dosage: UNK UKN, UNK
  8. HYDROCHLOROTHIAZIDE [Concomitant]
     Dosage: UNK UKN, UNK
  9. METOPROLOL [Concomitant]
     Dosage: UNK UKN, UNK
  10. SERTRALINE [Concomitant]
     Dosage: UNK UKN, UNK
  11. OXYCODONE [Concomitant]
     Dosage: UNK UKN, UNK
  12. ERYTHROMYCIN [Concomitant]
     Dosage: UNK UKN, UNK

REACTIONS (9)
  - Rheumatoid arthritis [Unknown]
  - Amnesia [Unknown]
  - Vitamin E deficiency [Unknown]
  - Pain [Unknown]
  - Muscle spasms [Unknown]
  - Abdominal pain upper [Unknown]
  - Musculoskeletal discomfort [Unknown]
  - Anxiety [Unknown]
  - Eructation [Unknown]
